FAERS Safety Report 9562800 (Version 1)
Quarter: 2013Q3

REPORT INFORMATION
  Report Type: Spontaneous
  Country: US (occurrence: US)
  Receive Date: 20130927
  Receipt Date: 20130927
  Transmission Date: 20140515
  Serious: Yes (Other)
  Sender: FDA-Public Use
  Company Number: US-BRISTOL-MYERS SQUIBB COMPANY-19396019

PATIENT
  Age: 51 Year
  Sex: Male
  Weight: 72.56 kg

DRUGS (8)
  1. BARACLUDE [Suspect]
  2. LYRICA [Suspect]
  3. ABILIFY TABS [Concomitant]
  4. LEXIVA [Concomitant]
  5. ACTOS [Concomitant]
  6. ATRIPLA [Concomitant]
  7. MARINOL [Concomitant]
  8. DICYCLOMINE [Concomitant]

REACTIONS (4)
  - Abdominal pain upper [Unknown]
  - Gallbladder disorder [Unknown]
  - Gastrooesophageal reflux disease [Unknown]
  - Swelling [Unknown]
